FAERS Safety Report 6828378 (Version 2)
Quarter: 2012Q4

REPORT INFORMATION
  Report Type: 
  Country: US (occurrence: US)
  Receive Date: 20081201
  Receipt Date: 20121023
  Transmission Date: 20130627
  Serious: No
  Sender: FDA-Public Use
  Company Number: US-AMGEN-KDL262859

PATIENT
  Age: 59 Year
  Sex: Female

DRUGS (7)
  1. ENBREL [Suspect]
     Indication: RHEUMATOID ARTHRITIS
     Dosage: 50 mg, qwk
     Route: 058
  2. ENBREL [Suspect]
     Indication: ARTHRITIS
  3. METHOTREXATE [Concomitant]
     Dosage: 2.5 mg, qwk
     Route: 048
  4. HYDROCHLOROTH [Concomitant]
     Dosage: 50 mg, UNK
  5. VITAMIN B-12 [Concomitant]
     Dosage: 1000 mug, UNK
  6. FLEXERIL                           /00428402/ [Concomitant]
     Dosage: 5 mg, UNK
  7. VITAMIN B-6 [Concomitant]
     Dosage: 50 mg, UNK

REACTIONS (1)
  - Injection site pain [Unknown]
